FAERS Safety Report 7263244-X (Version None)
Quarter: 2011Q1

REPORT INFORMATION
  Report Type: 
  Country: None (occurrence: None)
  Receive Date: 20110130
  Receipt Date: 20101013
  Transmission Date: 20110831
  Serious: No
  Sender: FDA-Public Use
  Company Number: US-ABBOTT-10P-163-0678410-00

PATIENT
  Age: 58 Year
  Sex: Female

DRUGS (13)
  1. DIOVAN [Concomitant]
     Indication: PRODUCT USED FOR UNKNOWN INDICATION
     Dosage: 126/25 MG DAILY
  2. AMLODIPINE [Concomitant]
     Indication: PRODUCT USED FOR UNKNOWN INDICATION
  3. A BOOST OF PREDNISONE [Concomitant]
     Dosage: FOR TWO DAYS
  4. SIMVASTATIN [Concomitant]
     Indication: PRODUCT USED FOR UNKNOWN INDICATION
     Dosage: FOR TEN DAYS
  5. PROZAC [Concomitant]
     Indication: PRODUCT USED FOR UNKNOWN INDICATION
  6. A BOOST OF PREDNISONE [Concomitant]
     Dosage: FOR TWO DAYS
  7. A BOOST OF PREDNISONE [Concomitant]
     Dosage: FOR TWO DAYS
  8. HUMIRA [Suspect]
     Indication: RHEUMATOID ARTHRITIS
     Dates: start: 20100701
  9. HYDROCHLOROTHIAZIDE [Concomitant]
     Indication: PRODUCT USED FOR UNKNOWN INDICATION
  10. PREDNISONE [Concomitant]
     Indication: PRODUCT USED FOR UNKNOWN INDICATION
  11. LEVAQUIN [Concomitant]
     Indication: PRODUCT USED FOR UNKNOWN INDICATION
     Dosage: FOR 10 DAYS
  12. A BOOST OF PREDNISONE [Concomitant]
     Indication: PRODUCT USED FOR UNKNOWN INDICATION
     Dosage: FOR TWO DAYS
  13. A BOOST OF PREDNISONE [Concomitant]
     Dosage: FOR TWO DAYS

REACTIONS (3)
  - BRONCHITIS [None]
  - COUGH [None]
  - WHEEZING [None]
